FAERS Safety Report 4916044-7 (Version None)
Quarter: 2006Q1

REPORT INFORMATION
  Report Type: 
  Country: None (occurrence: None)
  Receive Date: 20060214
  Receipt Date: 20060201
  Transmission Date: 20060701
  Serious: Yes (Other)
  Sender: FDA-Public Use
  Company Number: 200610613BWH

PATIENT
  Age: 78 Year
  Sex: Male

DRUGS (2)
  1. AVELOX [Suspect]
     Dosage: INTRAVENOUS
     Route: 042
  2. GLYBURIDE [Suspect]

REACTIONS (1)
  - HYPERINSULINAEMIA [None]
